FAERS Safety Report 7474967-1 (Version None)
Quarter: 2011Q2

REPORT INFORMATION
  Report Type: 
  Country: None (occurrence: None)
  Receive Date: 20110509
  Receipt Date: 20110509
  Transmission Date: 20111010
  Serious: Yes (Other)
  Sender: FDA-Public Use
  Company Number: None

PATIENT
  Sex: Male
  Weight: 70.7611 kg

DRUGS (2)
  1. PLAVIX [Suspect]
     Indication: CEREBROVASCULAR ACCIDENT
     Dates: start: 20090803, end: 20110503
  2. PLAVIX [Suspect]
     Indication: PROPHYLAXIS
     Dates: start: 20090803, end: 20110503

REACTIONS (2)
  - HAEMOGLOBIN DECREASED [None]
  - HAEMATURIA [None]
